FAERS Safety Report 5809717-5 (Version None)
Quarter: 2008Q3

REPORT INFORMATION
  Report Type: 
  Country: None (occurrence: None)
  Receive Date: 20080714
  Receipt Date: 20080714
  Transmission Date: 20090109
  Serious: No
  Sender: FDA-Public Use
  Company Number: None

PATIENT
  Age: 25 Year
  Sex: Male
  Weight: 87 kg

DRUGS (1)
  1. LARIAM [Suspect]
     Dosage: 1 TABLET WEEKLY PO
     Route: 048

REACTIONS (6)
  - ANXIETY [None]
  - DEPRESSION [None]
  - MALAISE [None]
  - MUSCLE TWITCHING [None]
  - NERVE INJURY [None]
  - PAIN [None]
